FAERS Safety Report 6813143-X (Version None)
Quarter: 2010Q3

REPORT INFORMATION
  Report Type: 
  Country: None (occurrence: None)
  Receive Date: 20100701
  Receipt Date: 20100622
  Transmission Date: 20110219
  Serious: Yes (Other)
  Sender: FDA-Public Use
  Company Number: FR-PFIZER INC-2010077652

PATIENT
  Age: 30 Year
  Sex: Male
  Weight: 80 kg

DRUGS (2)
  1. CAMPTOSAR [Suspect]
     Dosage: 12.8 G, ONCE IN 2 WEEKS
     Route: 042
     Dates: start: 20090528
  2. AVASTIN [Suspect]
     Dosage: 800 MG, ONCE IN 2 WEEKS
     Route: 042
     Dates: start: 20090528

REACTIONS (1)
  - SKIN NECROSIS [None]
